FAERS Safety Report 6692157-7 (Version None)
Quarter: 2010Q2

REPORT INFORMATION
  Report Type: 
  Country: None (occurrence: None)
  Receive Date: 20100422
  Receipt Date: 20090724
  Transmission Date: 20101027
  Serious: Yes (Other)
  Sender: FDA-Public Use
  Company Number: US-ASTRAZENECA-2009UW21350

PATIENT
  Sex: Female
  Weight: 93 kg

DRUGS (2)
  1. TOPROL-XL [Suspect]
     Indication: HYPERTENSION
     Route: 048
  2. HYZAAR [Concomitant]
     Indication: HYPERTENSION
     Dosage: 100/25 DAILY

REACTIONS (1)
  - ALANINE AMINOTRANSFERASE INCREASED [None]
